FAERS Safety Report 14011945 (Version 1)
Quarter: 2017Q3

REPORT INFORMATION
  Report Type: Spontaneous
  Country: FR (occurrence: FR)
  Receive Date: 20170926
  Receipt Date: 20170926
  Transmission Date: 20171128
  Serious: Yes (Hospitalization)
  Sender: FDA-Public Use
  Company Number: FR-JNJFOC-20170922092

PATIENT
  Age: 15 Year
  Sex: Male

DRUGS (2)
  1. IMUREL [Suspect]
     Active Substance: AZATHIOPRINE SODIUM
     Indication: CROHN^S DISEASE
     Route: 065
  2. SIMPONI [Suspect]
     Active Substance: GOLIMUMAB
     Indication: CROHN^S DISEASE
     Route: 058
     Dates: start: 201703

REACTIONS (7)
  - Viral test positive [Unknown]
  - Off label use [Unknown]
  - Product use issue [Unknown]
  - Hepatocellular injury [Unknown]
  - Device related sepsis [Recovering/Resolving]
  - Thrombocytopenia [Unknown]
  - Cholestasis [Unknown]

NARRATIVE: CASE EVENT DATE: 2017
